FAERS Safety Report 5044938-3 (Version None)
Quarter: 2006Q3

REPORT INFORMATION
  Report Type: 
  Country: None (occurrence: None)
  Receive Date: 20060707
  Receipt Date: 20051107
  Transmission Date: 20061208
  Serious: Yes (Other)
  Sender: FDA-Public Use
  Company Number: PHNU2005DE03664

PATIENT
  Sex: Female
  Weight: 47 kg

DRUGS (6)
  1. ASPIRIN [Concomitant]
     Dosage: 100 MG, QD
     Route: 048
  2. NOVODIGAL [Concomitant]
     Dosage: 0.4MG/DAY
  3. BELOC ZOK [Concomitant]
     Dosage: 95MG/DAY
     Route: 048
  4. RANITIDINE [Concomitant]
     Dosage: 300 MG, QD
     Route: 048
  5. IMMUNOSPORIN [Suspect]
     Indication: PEMPHIGOID
     Dosage: 50 MG, BID
     Route: 048
  6. IMMUNOSPORIN [Suspect]
     Dosage: 25 MG, BID

REACTIONS (4)
  - AGEUSIA [None]
  - DEHYDRATION [None]
  - FLUID INTAKE REDUCED [None]
  - ORAL CANDIDIASIS [None]
